FAERS Safety Report 20996974 (Version 2)
Quarter: 2023Q1

REPORT INFORMATION
  Report Type: Spontaneous
  Country: US (occurrence: US)
  Receive Date: 20220623
  Receipt Date: 20230331
  Transmission Date: 20230417
  Serious: Yes (Other)
  Sender: FDA-Public Use
  Company Number: US-MLMSERVICE-20220614-3612665-1

PATIENT

DRUGS (4)
  1. CYCLOPHOSPHAMIDE [Suspect]
     Active Substance: CYCLOPHOSPHAMIDE
     Indication: Ewing^s sarcoma
     Dosage: UNK
     Route: 065
  2. TOPOTECAN [Suspect]
     Active Substance: TOPOTECAN HYDROCHLORIDE
     Indication: Ewing^s sarcoma
     Dosage: UNK
     Route: 065
  3. IFOSFAMIDE [Suspect]
     Active Substance: IFOSFAMIDE
     Indication: Ewing^s sarcoma
     Dosage: UNK
     Route: 065
  4. ETOPOSIDE [Suspect]
     Active Substance: ETOPOSIDE
     Indication: Ewing^s sarcoma
     Dosage: 50% DOSE REDUCTION
     Route: 065

REACTIONS (3)
  - Meningitis cryptococcal [Unknown]
  - Meningitis bacterial [Unknown]
  - Toxicity to various agents [Unknown]
